FAERS Safety Report 15615280 (Version 1)
Quarter: 2018Q4

REPORT INFORMATION
  Report Type: Spontaneous
  Country: GB (occurrence: GB)
  Receive Date: 20181114
  Receipt Date: 20181114
  Transmission Date: 20190205
  Serious: Yes (Hospitalization)
  Sender: FDA-Public Use
  Company Number: GB-ACCORD-091676

PATIENT
  Age: 72 Year
  Sex: Female

DRUGS (8)
  1. CODEINE [Concomitant]
     Active Substance: CODEINE
  2. PRAVASTATIN. [Concomitant]
     Active Substance: PRAVASTATIN
  3. FOLATE SODIUM/FOLIC ACID [Concomitant]
  4. METHOTREXATE. [Suspect]
     Active Substance: METHOTREXATE
     Indication: PRODUCT USED FOR UNKNOWN INDICATION
     Dosage: DOSE: 10
     Route: 048
     Dates: start: 20180906
  5. CALCIUM CARBONATE/COLECALCIFEROL [Concomitant]
  6. PARACETAMOL/PROMETHAZINE HYDROCHLORIDE [Concomitant]
  7. METFORMIN [Concomitant]
     Active Substance: METFORMIN HYDROCHLORIDE
  8. RAMIPRIL. [Concomitant]
     Active Substance: RAMIPRIL

REACTIONS (3)
  - Oesophageal pain [Not Recovered/Not Resolved]
  - Liver function test abnormal [Not Recovered/Not Resolved]
  - Abdominal pain upper [Not Recovered/Not Resolved]
